FAERS Safety Report 8990425 (Version 1)
Quarter: 2012Q4

REPORT INFORMATION
  Report Type: Report from Study
  Country: PL (occurrence: PL)
  Receive Date: 20121228
  Receipt Date: 20121228
  Transmission Date: 20130627
  Serious: Yes (Hospitalization)
  Sender: FDA-Public Use
  Company Number: PL-BAXTER-2012BAX028797

PATIENT
  Age: 62 Year
  Sex: Male
  Weight: 70 kg

DRUGS (3)
  1. ENDOXAN [Suspect]
     Indication: B-CELL CHRONIC LYMPHOCYTIC LEUKEMIA
     Route: 042
     Dates: start: 20110112
  2. CLADRIBINE [Suspect]
     Indication: B-CELL CHRONIC LYMPHOCYTIC LEUKEMIA
     Route: 042
     Dates: start: 20110112
  3. RITUXIMAB [Suspect]
     Indication: B-CELL CHRONIC LYMPHOCYTIC LEUKEMIA
     Route: 042
     Dates: start: 20110111

REACTIONS (1)
  - Herpes zoster [Recovered/Resolved]
